FAERS Safety Report 5964980-5 (Version None)
Quarter: 2008Q4

REPORT INFORMATION
  Report Type: 
  Country: None (occurrence: None)
  Receive Date: 20081125
  Receipt Date: 20081113
  Transmission Date: 20090506
  Serious: Yes (Other)
  Sender: FDA-Public Use
  Company Number: PHEH2008US10230

PATIENT
  Sex: Female
  Weight: 67.12 kg

DRUGS (14)
  1. ZOMETA [Suspect]
  2. ALKERAN [Concomitant]
  3. PREDNISONE TAB [Concomitant]
  4. COZAAR [Concomitant]
     Dosage: 50 MG
  5. ATENOLOL [Concomitant]
     Dosage: 50 MG
  6. MODURETIC 5-50 [Concomitant]
     Dosage: 500 MG
  7. ZOCOR [Concomitant]
  8. ACIPHEX [Concomitant]
  9. FOSAMAX [Concomitant]
  10. ACTONEL [Concomitant]
  11. FAMVIR                                  /NET/ [Concomitant]
     Dosage: UNK
     Dates: start: 20050901
  12. PEPCID [Concomitant]
  13. LEVAQUIN [Concomitant]
  14. LIPITOR [Concomitant]

REACTIONS (8)
  - CHOLECYSTECTOMY [None]
  - CHOLECYSTITIS [None]
  - GASTROOESOPHAGEAL REFLUX DISEASE [None]
  - HERPES ZOSTER [None]
  - HYPERLIPIDAEMIA [None]
  - HYPERTENSION [None]
  - TONSILLAR DISORDER [None]
  - TOOTH DISORDER [None]
